FAERS Safety Report 17275931 (Version 1)
Quarter: 2020Q1

REPORT INFORMATION
  Report Type: Spontaneous
  Country: US (occurrence: US)
  Receive Date: 20200116
  Receipt Date: 20200116
  Transmission Date: 20200409
  Serious: Yes (Death, Hospitalization, Other)
  Sender: FDA-Public Use
  Company Number: US-APOTEX-2020AP006308

PATIENT
  Age: 53 Year
  Sex: Female

DRUGS (8)
  1. FENTANYL. [Suspect]
     Active Substance: FENTANYL
     Indication: PRODUCT USED FOR UNKNOWN INDICATION
     Dosage: UNK, ACUTE EXPOSURE
     Route: 065
  2. CLONIDINE. [Suspect]
     Active Substance: CLONIDINE
     Dosage: UNK, ACUTE EXPOSURE
     Route: 048
  3. FENTANYL. [Suspect]
     Active Substance: FENTANYL
     Dosage: UNK, ACUTE EXPOSURE
     Route: 048
  4. HEROIN [Suspect]
     Active Substance: DIAMORPHINE
     Dosage: UNK, ACUTE EXPOSURE
     Route: 048
  5. CLONIDINE. [Suspect]
     Active Substance: CLONIDINE
     Indication: PRODUCT USED FOR UNKNOWN INDICATION
     Dosage: UNK, ACUTE EXPOSURE
     Route: 065
  6. SERTRALINE [Suspect]
     Active Substance: SERTRALINE HYDROCHLORIDE
     Indication: PRODUCT USED FOR UNKNOWN INDICATION
     Dosage: UNK, ACUTE EXPOSURE
     Route: 065
  7. SERTRALINE [Suspect]
     Active Substance: SERTRALINE HYDROCHLORIDE
     Dosage: UNK,ACUTE EXPOSURE
     Route: 048
  8. HEROIN [Suspect]
     Active Substance: DIAMORPHINE
     Indication: PRODUCT USED FOR UNKNOWN INDICATION
     Dosage: UNK, ACUTE EXPOSURE
     Route: 065

REACTIONS (2)
  - Cardio-respiratory arrest [Fatal]
  - Intentional product use issue [Fatal]

NARRATIVE: CASE EVENT DATE: 2018
